FAERS Safety Report 25061267 (Version 1)
Quarter: 2025Q1

REPORT INFORMATION
  Report Type: Spontaneous
  Country: US (occurrence: US)
  Receive Date: 20250311
  Receipt Date: 20250311
  Transmission Date: 20250409
  Serious: No
  Sender: CSL BEHRING
  Company Number: US-BEH-2025197804

PATIENT
  Age: 60 Year
  Sex: Female

DRUGS (16)
  1. HIZENTRA [Suspect]
     Active Substance: HUMAN IMMUNOGLOBULIN G
     Indication: Asthma
     Dosage: 34 G, QOW
     Route: 058
  2. MEDROL [Concomitant]
     Active Substance: METHYLPREDNISOLONE
  3. METHOCARBAMOL [Concomitant]
     Active Substance: METHOCARBAMOL
  4. DESMOPRESSIN [Concomitant]
     Active Substance: DESMOPRESSIN
  5. ALBUTEROL [Concomitant]
     Active Substance: ALBUTEROL
  6. AZITHROMYCIN [Concomitant]
     Active Substance: AZITHROMYCIN
  7. EPINEPHRINE [Concomitant]
     Active Substance: EPINEPHRINE
  8. HYDROCHLOROTHIAZIDE [Concomitant]
     Active Substance: HYDROCHLOROTHIAZIDE
  9. MONTELUKAST [Concomitant]
     Active Substance: MONTELUKAST
  10. MONTELUKAST [Concomitant]
     Active Substance: MONTELUKAST
  11. PANTOPRAZOLE [Concomitant]
     Active Substance: PANTOPRAZOLE
  12. POTASSIUM CHLORATE [Concomitant]
     Active Substance: POTASSIUM CHLORATE
  13. VITAMIN B6 [Concomitant]
     Active Substance: PYRIDOXINE HYDROCHLORIDE
  14. VITAMIN C [Concomitant]
     Active Substance: ASCORBIC ACID
  15. VITAMIN D [Concomitant]
     Active Substance: VITAMIN D NOS
  16. ZINC [Concomitant]
     Active Substance: ZINC

REACTIONS (4)
  - Gastroenteritis viral [Unknown]
  - Food poisoning [Unknown]
  - Vomiting [Unknown]
  - Diarrhoea [Unknown]

NARRATIVE: CASE EVENT DATE: 20250201
